FAERS Safety Report 8471252-6 (Version None)
Quarter: 2012Q2

REPORT INFORMATION
  Report Type: 
  Country: None (occurrence: None)
  Receive Date: 20120627
  Receipt Date: 20120621
  Transmission Date: 20120825
  Serious: Yes (Hospitalization, Other)
  Sender: FDA-Public Use
  Company Number: CELGENEUS-087-21880-11090386

PATIENT
  Sex: Male

DRUGS (26)
  1. REVLIMID [Suspect]
     Dosage: 5 MILLIGRAM
     Route: 048
     Dates: start: 20101214, end: 20110103
  2. DEXAMETHASONE ACETATE [Suspect]
     Indication: MULTIPLE MYELOMA
     Dosage: 40 MILLIGRAM
     Route: 048
     Dates: start: 20101125, end: 20101128
  3. DEXAMETHASONE ACETATE [Suspect]
     Dosage: 4 MILLIGRAM
     Route: 048
     Dates: start: 20101203, end: 20101206
  4. DECADRON [Concomitant]
     Indication: MULTIPLE MYELOMA
     Dosage: 80 MILLIGRAM
     Route: 048
     Dates: start: 20101117, end: 20101120
  5. DIFLUCAN [Concomitant]
     Indication: PROPHYLAXIS
     Dosage: 1 CAPSULE
     Route: 048
  6. DAIPHEN [Concomitant]
     Indication: PROPHYLAXIS
     Dosage: 2 TABLET
     Route: 048
  7. LANTUS [Concomitant]
     Indication: DIABETES MELLITUS
     Route: 058
  8. SODIUM BICARBONATE [Concomitant]
     Dosage: 1.5 GRAM
     Route: 048
  9. JUVELA [Concomitant]
     Dosage: 6 CAPSULE
     Route: 048
  10. POLARAMINE [Concomitant]
     Indication: PROPHYLAXIS
     Dosage: 5 MILLIGRAM
     Route: 041
     Dates: start: 20101118, end: 20110104
  11. LANSOPRAZOLE [Concomitant]
     Indication: PROPHYLAXIS
     Dosage: 15 MILLIGRAM
     Route: 048
  12. VITAMEDIN [Concomitant]
     Dosage: 4 CAPSULE
     Route: 048
  13. ALFAROL [Concomitant]
     Dosage: 2 CAPSULE
     Route: 048
  14. NOVOLIN R [Concomitant]
     Indication: DIABETES MELLITUS
     Route: 058
  15. PRECIPITATED CALCIUM CARBONATE [Concomitant]
     Dosage: 3 GRAM
     Route: 048
  16. REVLIMID [Suspect]
     Indication: MULTIPLE MYELOMA
     Dosage: 5 MILLIGRAM
     Route: 048
     Dates: start: 20101117, end: 20101207
  17. REVLIMID [Suspect]
     Dosage: 5 MILLIGRAM
     Route: 048
     Dates: start: 20110125, end: 20110202
  18. DEXAMETHASONE ACETATE [Suspect]
     Dosage: 40 MILLIGRAM
     Route: 048
     Dates: start: 20101221, end: 20101224
  19. ALLOPURINOL [Concomitant]
     Dosage: 50 MILLIGRAM
     Route: 048
  20. LASIX [Concomitant]
     Indication: PROPHYLAXIS
     Dosage: 10 MILLIGRAM
     Route: 041
     Dates: start: 20101118, end: 20110104
  21. CRAVIT [Concomitant]
     Indication: PROPHYLAXIS
     Dosage: .5 TABLET
     Route: 048
  22. ASPIRIN [Concomitant]
     Indication: PROPHYLAXIS
     Dosage: 1 TABLET
     Route: 048
     Dates: start: 20101229, end: 20110104
  23. VICCLOX [Concomitant]
     Indication: PROPHYLAXIS
     Dosage: 200 MILLIGRAM
     Route: 048
  24. UNASYN [Concomitant]
     Indication: PROPHYLAXIS
     Dosage: 1 TABLET
     Route: 048
     Dates: start: 20101212, end: 20101212
  25. NEO-MINOPHAGEN C [Concomitant]
     Indication: PROPHYLAXIS
     Dosage: 20 MILLIGRAM
     Route: 041
     Dates: start: 20101118, end: 20110104
  26. CRAVIT [Concomitant]
     Dosage: .5 TABLET
     Route: 048
     Dates: start: 20101213

REACTIONS (4)
  - THROMBOCYTOPENIA [None]
  - NEUTROPHIL COUNT DECREASED [None]
  - ARRHYTHMIA [None]
  - NEUTROPENIA [None]
